FAERS Safety Report 7667240-X (Version None)
Quarter: 2011Q3

REPORT INFORMATION
  Report Type: 
  Country: None (occurrence: None)
  Receive Date: 20110806
  Receipt Date: 20110405
  Transmission Date: 20111222
  Serious: No
  Sender: FDA-Public Use
  Company Number: US-ABBOTT-11P-163-0716564-00

PATIENT
  Sex: Male
  Weight: 74.91 kg

DRUGS (3)
  1. ASPIRIN [Concomitant]
     Indication: PRODUCT USED FOR UNKNOWN INDICATION
     Dosage: 1/2 HOUR BEFORE DOSE OF NIASPAN COATED
     Route: 048
  2. NIASPAN [Suspect]
     Dosage: 500 MG DAILY AT BEDTIME
     Route: 048
     Dates: start: 20110321
  3. NIASPAN [Suspect]
     Indication: BLOOD CHOLESTEROL INCREASED
     Dosage: 500 MG DAILY AT BEDTIME
     Route: 048
     Dates: start: 20110105, end: 20110107

REACTIONS (3)
  - ERYTHEMA [None]
  - FEELING HOT [None]
  - FLUSHING [None]
